FAERS Safety Report 5003676-3 (Version None)
Quarter: 2006Q2

REPORT INFORMATION
  Report Type: 
  Country: None (occurrence: None)
  Receive Date: 20060516
  Receipt Date: 20050505
  Transmission Date: 20061013
  Serious: Yes (Death)
  Sender: FDA-Public Use
  Company Number: US-MERCK-0505USA00806

PATIENT
  Age: 57 Year
  Sex: Male
  Weight: 94 kg

DRUGS (10)
  1. VIOXX [Suspect]
     Indication: PAIN
     Route: 048
  2. VIOXX [Suspect]
     Route: 048
  3. VIOXX [Suspect]
     Route: 048
  4. AMARYL [Concomitant]
     Route: 065
  5. ZESTRIL [Concomitant]
     Route: 065
  6. FLEXERIL [Concomitant]
     Route: 065
  7. NEURONTIN [Concomitant]
     Route: 065
  8. VITAMINS (UNSPECIFIED) [Concomitant]
     Route: 065
  9. VITAMINS (UNSPECIFIED) [Concomitant]
     Route: 065
  10. LORTAB [Concomitant]
     Route: 065

REACTIONS (4)
  - ARRHYTHMIA [None]
  - ARTERIOSCLEROSIS [None]
  - CARDIOVASCULAR DISORDER [None]
  - CORONARY ARTERY THROMBOSIS [None]
